FAERS Safety Report 8125241-1 (Version None)
Quarter: 2012Q1

REPORT INFORMATION
  Report Type: 
  Country: None (occurrence: None)
  Receive Date: 20120209
  Receipt Date: 20120202
  Transmission Date: 20120608
  Serious: Yes (Hospitalization)
  Sender: FDA-Public Use
  Company Number: US-VERTEX PHARMACEUTICALS INC.-AE-2012-000397

PATIENT
  Sex: Female
  Weight: 48.5 kg

DRUGS (8)
  1. RIBAVIRIN [Concomitant]
     Route: 048
     Dates: start: 20120127
  2. PEGASYS [Concomitant]
     Dates: start: 20120127
  3. PROTONIX [Concomitant]
  4. NORVASC [Concomitant]
  5. INCIVEK [Suspect]
     Indication: HEPATITIS C
     Route: 048
     Dates: start: 20111230
  6. RIBAVIRIN [Concomitant]
     Indication: HEPATITIS C
     Route: 048
     Dates: start: 20111230
  7. PEGASYS [Concomitant]
     Indication: HEPATITIS C
     Route: 058
     Dates: start: 20111230
  8. ZOLOFT [Concomitant]

REACTIONS (6)
  - DYSPHAGIA [None]
  - MUSCLE SPASMS [None]
  - FATIGUE [None]
  - DECREASED APPETITE [None]
  - NAUSEA [None]
  - BLOOD COUNT ABNORMAL [None]
